FAERS Safety Report 9802709 (Version 1)
Quarter: 2014Q1

REPORT INFORMATION
  Report Type: Spontaneous
  Country: US (occurrence: US)
  Receive Date: 20140108
  Receipt Date: 20140108
  Transmission Date: 20141002
  Serious: Yes (Other)
  Sender: FDA-Public Use
  Company Number: US-BEH-2013039700

PATIENT
  Sex: 0

DRUGS (2)
  1. PRIVIGEN [Suspect]
     Indication: VASCULITIS CEREBRAL
     Dosage: ORDER HAD BEEN DOSING FOUR DAYS IN A ROW 25 G, 35 G, 50 G AND 50 G
     Dates: start: 20131218
  2. HIGH DOSE STEROIDS [Concomitant]

REACTIONS (1)
  - Angioedema [Unknown]
